FAERS Safety Report 9611240 (Version 3)
Quarter: 2013Q4

REPORT INFORMATION
  Report Type: Report from Study
  Country: ES (occurrence: ES)
  Receive Date: 20131010
  Receipt Date: 20131204
  Transmission Date: 20140711
  Serious: Yes (Hospitalization)
  Sender: FDA-Public Use
  Company Number: ES-ROCHE-1284414

PATIENT
  Age: 53 Year
  Sex: Male
  Weight: 65.4 kg

DRUGS (22)
  1. TRASTUZUMAB EMTANSINE [Suspect]
     Indication: GASTRIC CANCER
     Dosage: MOST RECENT DOSE PRIOR TO SAE: 144MG ON 29/AUG/2013
     Route: 042
     Dates: start: 20130613
  2. NOVONORM [Concomitant]
     Indication: DIABETES MELLITUS
     Route: 065
     Dates: start: 20130620
  3. PARACETAMOL [Concomitant]
     Indication: PAIN
     Route: 065
     Dates: start: 20130626
  4. TRAMADOL [Concomitant]
     Indication: PAIN
     Route: 065
     Dates: start: 20130626
  5. DUPHALAC [Concomitant]
     Indication: CONSTIPATION
     Route: 065
     Dates: start: 20130703
  6. LORMETAZEPAM [Concomitant]
     Indication: PAIN
     Route: 065
     Dates: start: 20130710
  7. LORAZEPAM [Concomitant]
     Indication: ANXIETY
     Route: 065
     Dates: start: 20130710
  8. LORAZEPAM [Concomitant]
     Indication: RESTLESSNESS
  9. OMEPRAZOL [Concomitant]
     Indication: ANXIETY
     Route: 065
     Dates: start: 20130723
  10. OMEPRAZOL [Concomitant]
     Indication: RESTLESSNESS
  11. PUNTUAL [Concomitant]
     Indication: CONSTIPATION
     Route: 065
     Dates: start: 20130723
  12. DIAZEPAM [Concomitant]
     Indication: RESTLESSNESS
     Route: 065
     Dates: start: 20130723
  13. MIRTAZAPINE [Concomitant]
     Indication: DEPRESSION
     Route: 065
     Dates: start: 20130801
  14. STILNOX [Concomitant]
     Indication: INSOMNIA
     Route: 065
     Dates: start: 20130801
  15. FENTANYL [Concomitant]
     Indication: PAIN
     Route: 065
     Dates: start: 20130814
  16. EFFENTORA [Concomitant]
     Route: 065
     Dates: start: 20130814
  17. EFFENTORA [Concomitant]
     Indication: PAIN PROPHYLAXIS
     Route: 065
     Dates: start: 20130814
  18. EMULIQUEN ANTIESP [Concomitant]
     Indication: CONSTIPATION
     Route: 065
     Dates: start: 20130814
  19. AMITRIPTYLINE [Concomitant]
     Indication: DEPRESSION
     Route: 065
     Dates: start: 20130829
  20. LYRICA [Concomitant]
     Indication: PAIN
     Route: 065
     Dates: start: 20130819
  21. LYRICA [Concomitant]
     Indication: NEUROTOXICITY
  22. TEGRETOL [Concomitant]
     Indication: NEUROTOXICITY
     Route: 065
     Dates: start: 20130919

REACTIONS (1)
  - Dysphagia [Recovered/Resolved]
